FAERS Safety Report 8218037-3 (Version None)
Quarter: 2012Q1

REPORT INFORMATION
  Report Type: 
  Country: None (occurrence: None)
  Receive Date: 20120319
  Receipt Date: 20120313
  Transmission Date: 20120608
  Serious: Yes (Other)
  Sender: FDA-Public Use
  Company Number: US-BAYER-2012-024623

PATIENT
  Age: 18 Year
  Sex: Female

DRUGS (3)
  1. DROSPIRENONE AND ETHINYL ESTRADIOL [Suspect]
     Dosage: UNK
     Dates: start: 20020101
  2. YAZ [Suspect]
     Dosage: UNK
     Dates: start: 20020101
  3. YASMIN [Suspect]
     Dosage: UNK
     Dates: start: 20020101

REACTIONS (4)
  - INJURY [None]
  - CEREBRAL THROMBOSIS [None]
  - EMOTIONAL DISTRESS [None]
  - PAIN [None]
